FAERS Safety Report 6930298-7 (Version None)
Quarter: 2010Q3

REPORT INFORMATION
  Report Type: 
  Country: None (occurrence: None)
  Receive Date: 20100818
  Receipt Date: 20100810
  Transmission Date: 20110219
  Serious: Yes (Hospitalization, Disabling)
  Sender: FDA-Public Use
  Company Number: US-ROCHE-401244

PATIENT
  Sex: Male
  Weight: 89.8 kg

DRUGS (4)
  1. ACCUTANE [Suspect]
     Dosage: FORMULATION = CAPSULE
     Route: 048
     Dates: start: 19890216, end: 19890818
  2. ACCUTANE [Suspect]
     Dosage: FORMULATION = CAPSULE
     Route: 048
     Dates: start: 19900313, end: 19901216
  3. ACCUTANE [Suspect]
     Dosage: FORMULATION = UNKNOWN
     Route: 048
     Dates: start: 19941229, end: 19950319
  4. ACETAMINOPHEN [Concomitant]
     Indication: PRODUCT USED FOR UNKNOWN INDICATION
     Route: 048

REACTIONS (9)
  - EPISTAXIS [None]
  - FRACTURE [None]
  - GLOMERULOSCLEROSIS [None]
  - MULTI-ORGAN DISORDER [None]
  - OSTEITIS [None]
  - PROTEINURIA [None]
  - RENAL DISORDER [None]
  - RENAL FAILURE [None]
  - RENAL FAILURE CHRONIC [None]
